FAERS Safety Report 23626794 (Version 1)
Quarter: 2024Q1

REPORT INFORMATION
  Report Type: Spontaneous
  Country: CA (occurrence: CA)
  Receive Date: 20240313
  Receipt Date: 20240313
  Transmission Date: 20240410
  Serious: Yes (Death)
  Sender: FDA-Public Use
  Company Number: CA-PFIZER INC-202400062405

PATIENT
  Age: 83 Year
  Sex: Female

DRUGS (5)
  1. VYNDAMAX [Suspect]
     Active Substance: TAFAMIDIS
     Indication: Cardiac amyloidosis
     Dosage: 61 MG, 1X/DAY
     Route: 048
     Dates: start: 20240202, end: 2024
  2. ENTRESTO [Concomitant]
     Active Substance: SACUBITRIL\VALSARTAN
     Dosage: 24/26MG
  3. METOPROLOL [Concomitant]
     Active Substance: METOPROLOL
     Dosage: 25MG, 1/4 TAB 2X/DAY
  4. OPUS D 1000 [Concomitant]
     Dosage: 1000 IU
  5. SPIRONOLACTONE [Concomitant]
     Active Substance: SPIRONOLACTONE
     Dosage: 12.5 MG, DAILY

REACTIONS (1)
  - Death [Fatal]
